FAERS Safety Report 23773764 (Version 1)
Quarter: 2024Q2

REPORT INFORMATION
  Report Type: Spontaneous
  Country: IT (occurrence: IT)
  Receive Date: 20240423
  Receipt Date: 20240423
  Transmission Date: 20240716
  Serious: Yes (Death)
  Sender: FDA-Public Use
  Company Number: None

PATIENT
  Age: 79 Year
  Sex: Male

DRUGS (3)
  1. OXALIPLATIN [Suspect]
     Active Substance: OXALIPLATIN
     Indication: Colon cancer
     Dosage: 3RD CYCLE FOLFOX PANITUMUMAB SCHEDULE, SCHEDULE Q14
     Route: 042
     Dates: start: 20240219, end: 20240219
  2. VECTIBIX [Concomitant]
     Active Substance: PANITUMUMAB
     Indication: Colorectal adenocarcinoma
     Dosage: 3RD CYCLE FOLFOX PANITUMUMAB SCHEDULE, SCHEDULE Q14
     Route: 042
     Dates: start: 20240219, end: 20240219
  3. FLUOROURACIL [Suspect]
     Active Substance: FLUOROURACIL
     Indication: Colon cancer
     Dosage: 3RD CYCLE FOLFOX PANITUMUMAB SCHEDULE, SCHEDULE Q14
     Route: 042
     Dates: start: 20240219, end: 20240219

REACTIONS (2)
  - Mucosal inflammation [Fatal]
  - Pancytopenia [Fatal]

NARRATIVE: CASE EVENT DATE: 20240229
